FAERS Safety Report 4319092-3 (Version None)
Quarter: 2004Q1

REPORT INFORMATION
  Report Type: 
  Country: None (occurrence: None)
  Receive Date: 20040316
  Receipt Date: 20040302
  Transmission Date: 20041129
  Serious: Yes (Death, Hospitalization)
  Sender: FDA-Public Use
  Company Number: 04P-056-0252274-00

PATIENT
  Age: 16 Year
  Sex: Female

DRUGS (1)
  1. RYTHMOL [Suspect]
     Dosage: 300.0 MG
     Route: 048

REACTIONS (6)
  - CARDIO-RESPIRATORY ARREST [None]
  - CONVULSION [None]
  - MYDRIASIS [None]
  - POISONING [None]
  - SELF-MEDICATION [None]
  - VOMITING [None]
